FAERS Safety Report 23921786 (Version 2)
Quarter: 2024Q2

REPORT INFORMATION
  Report Type: Report from Study
  Country: US (occurrence: US)
  Receive Date: 20240530
  Receipt Date: 20240608
  Transmission Date: 20240717
  Serious: Yes (Death, Hospitalization, Other)
  Sender: FDA-Public Use
  Company Number: US-ABBVIE-5781356

PATIENT
  Age: 85 Year
  Sex: Male
  Weight: 61 kg

DRUGS (4)
  1. IMBRUVICA [Suspect]
     Active Substance: IBRUTINIB
     Indication: Chronic lymphocytic leukaemia (in remission)
     Dosage: FORM STRENGTH: 420MG
     Route: 048
     Dates: start: 20230112, end: 20240513
  2. DECADRON [Concomitant]
     Active Substance: DEXAMETHASONE
     Indication: Product used for unknown indication
  3. LEVAQUIN [Concomitant]
     Active Substance: LEVOFLOXACIN
     Indication: Product used for unknown indication
  4. VANCOMYCIN [Concomitant]
     Active Substance: VANCOMYCIN
     Indication: Product used for unknown indication

REACTIONS (9)
  - Respiratory failure [Recovered/Resolved]
  - Pneumonia [Fatal]
  - Pulmonary oedema [Not Recovered/Not Resolved]
  - Dyspnoea [Unknown]
  - Myocardial infarction [Unknown]
  - Respiratory failure [Fatal]
  - Bronchitis [Unknown]
  - Myocardial injury [Not Recovered/Not Resolved]
  - Respiratory arrest [Fatal]

NARRATIVE: CASE EVENT DATE: 20240401
